FAERS Safety Report 8824383 (Version 1)
Quarter: 2012Q4

REPORT INFORMATION
  Report Type: 
  Country: US (occurrence: US)
  Receive Date: 20121004
  Receipt Date: 20121004
  Transmission Date: 20130627
  Serious: Yes (Hospitalization)
  Sender: FDA-Public Use
  Company Number: US-BAYER-2012-102902

PATIENT
  Age: 43 Year
  Sex: Female
  Weight: 94.79 kg

DRUGS (15)
  1. YAZ [Suspect]
  2. BEYAZ [Suspect]
  3. FLUCONAZOLE [Concomitant]
     Dosage: 150 mg, UNK
     Route: 048
     Dates: start: 20110629
  4. AMOXICILLIN W/CLAVULANATE POTASSIUM [Concomitant]
     Dosage: 875 mg, UNK
     Route: 048
     Dates: start: 20110629
  5. AMOXICILLIN W/CLAVULANATE POTASSIUM [Concomitant]
     Dosage: 875 mg, UNK
     Route: 048
     Dates: start: 20110701
  6. AUGMENTIN [Concomitant]
     Indication: PNEUMONIA
     Dosage: 875 mg, UNK
     Route: 048
     Dates: start: 20110629
  7. AUGMENTIN [Concomitant]
     Indication: PNEUMONIA
     Dosage: UNK
     Dates: start: 20110701
  8. DIFLUCAN [Concomitant]
     Dosage: 150 mg, UNK
     Route: 048
     Dates: start: 20110701
  9. MUCINEX [Concomitant]
     Dosage: UNK
     Route: 048
     Dates: start: 20110701
  10. PREDNISONE [Concomitant]
     Route: 048
  11. CANNABIS SATIVA SUBSP. INDICA TOP [Concomitant]
     Indication: PAIN
  12. NORCO [Concomitant]
  13. KLONOPIN [Concomitant]
  14. WELLBUTRIN [Concomitant]
  15. NICOTINE [Concomitant]

REACTIONS (1)
  - Pulmonary embolism [None]
